FAERS Safety Report 9917783 (Version 1)
Quarter: 2014Q1

REPORT INFORMATION
  Report Type: Spontaneous
  Country: US (occurrence: US)
  Receive Date: 20140221
  Receipt Date: 20140221
  Transmission Date: 20141002
  Serious: No
  Sender: FDA-Public Use
  Company Number: US-PFIZER INC-2014047507

PATIENT
  Age: 69 Year
  Sex: Female
  Weight: 102 kg

DRUGS (4)
  1. SERTRALINE HCL [Suspect]
     Dosage: 100 MG, 1X/DAY
     Dates: end: 201212
  2. BENICAR [Concomitant]
     Indication: HYPERTENSION
     Dosage: 40 MG, 1X/DAY
  3. LAMICTAL [Concomitant]
     Indication: AFFECTIVE DISORDER
     Dosage: 250 MG, 1X/DAY
  4. CLONAZEPAM [Concomitant]
     Indication: ANXIETY
     Dosage: 2 MG, 1X/DAY

REACTIONS (2)
  - Malaise [Recovered/Resolved]
  - Dizziness [Recovered/Resolved]
